FAERS Safety Report 6476710-1 (Version None)
Quarter: 2009Q4

REPORT INFORMATION
  Report Type: 
  Country: None (occurrence: None)
  Receive Date: 20091207
  Receipt Date: 20091126
  Transmission Date: 20100525
  Serious: Yes (Other)
  Sender: FDA-Public Use
  Company Number: GB-ROCHE-671563

PATIENT
  Age: 53 Year
  Sex: Female

DRUGS (1)
  1. TAMIFLU [Suspect]
     Route: 065
     Dates: start: 20091105

REACTIONS (1)
  - SALMONELLOSIS [None]
